FAERS Safety Report 9168958 (Version 3)
Quarter: 2013Q3

REPORT INFORMATION
  Report Type: Spontaneous
  Country: US (occurrence: US)
  Receive Date: 20130318
  Receipt Date: 20130722
  Transmission Date: 20140515
  Serious: No
  Sender: FDA-Public Use
  Company Number: US-PFIZER INC-2013087849

PATIENT
  Age: 29 Year
  Sex: Female

DRUGS (2)
  1. XELJANZ [Suspect]
     Indication: RHEUMATOID ARTHRITIS
     Dosage: 5 MG, 2X/DAY
     Dates: start: 20130228
  2. XELJANZ [Suspect]
     Dosage: 10 MG, 2X/DAY (5 MG 2 TABLETS[10MG] BID)

REACTIONS (6)
  - Intentional overdose [Unknown]
  - Sleep terror [Unknown]
  - Aphasia [Unknown]
  - Disturbance in attention [Unknown]
  - Arthralgia [Unknown]
  - Skin lesion [Unknown]
